FAERS Safety Report 13669674 (Version 2)
Quarter: 2017Q3

REPORT INFORMATION
  Report Type: Spontaneous
  Country: US (occurrence: US)
  Receive Date: 20170620
  Receipt Date: 20170809
  Transmission Date: 20171127
  Serious: Yes (Death, Hospitalization, Other)
  Sender: FDA-Public Use
  Company Number: US-AMGEN-USASP2017090760

PATIENT
  Age: 81 Year
  Sex: Male
  Weight: 79.7 kg

DRUGS (1)
  1. BLINCYTO [Suspect]
     Active Substance: BLINATUMOMAB
     Indication: B-CELL LYMPHOMA
     Dosage: 28 MUG, QD
     Route: 065
     Dates: start: 20170113, end: 20170428

REACTIONS (8)
  - Thrombosis [Unknown]
  - Pulmonary embolism [Unknown]
  - Pulmonary mass [Unknown]
  - Death [Fatal]
  - Off label use [Unknown]
  - Discomfort [Unknown]
  - Hydronephrosis [Unknown]
  - Occult blood positive [Unknown]

NARRATIVE: CASE EVENT DATE: 2017
